FAERS Safety Report 4829047-8 (Version None)
Quarter: 2005Q4

REPORT INFORMATION
  Report Type: 
  Country: None (occurrence: None)
  Receive Date: 20051027
  Receipt Date: 20050413
  Transmission Date: 20060501
  Serious: Yes (Hospitalization)
  Sender: FDA-Public Use
  Company Number: 200513070US

PATIENT
  Age: 18 Year
  Sex: Female

DRUGS (5)
  1. ARAVA [Suspect]
     Indication: RHEUMATOID ARTHRITIS
     Dosage: 20 MG QD PO
     Route: 048
     Dates: start: 20041001, end: 20050410
  2. INDOMETACIN (INDOCIN) [Concomitant]
  3. PREVACID [Concomitant]
  4. ZANTAC [Concomitant]
  5. HYDROXYCHLOROQUINE SULFATE (PLAQUENIL) [Concomitant]

REACTIONS (1)
  - PANCREATITIS ACUTE [None]
